FAERS Safety Report 17491098 (Version 1)
Quarter: 2020Q1

REPORT INFORMATION
  Report Type: Spontaneous
  Country: US (occurrence: US)
  Receive Date: 20200303
  Receipt Date: 20200303
  Transmission Date: 20200409
  Serious: Yes (Other)
  Sender: FDA-Public Use
  Company Number: US-PFIZER INC-2020092419

PATIENT

DRUGS (1)
  1. CRIZOTINIB [Suspect]
     Active Substance: CRIZOTINIB
     Dosage: 250 MG, 2X/DAY

REACTIONS (3)
  - Alanine aminotransferase increased [Unknown]
  - Liver function test increased [Not Recovered/Not Resolved]
  - Aspartate aminotransferase increased [Unknown]
